FAERS Safety Report 8671310 (Version 6)
Quarter: 2013Q1

REPORT INFORMATION
  Report Type: Spontaneous
  Country: GB (occurrence: GB)
  Receive Date: 20120718
  Receipt Date: 20130312
  Transmission Date: 20140127
  Serious: Yes (Death, Hospitalization, Other)
  Sender: FDA-Public Use
  Company Number: PHFR2012GB004012

PATIENT
  Age: 69 Year
  Sex: Male

DRUGS (2)
  1. CLOZARIL [Suspect]
     Indication: SCHIZOPHRENIA
     Dosage: 650 MG, DAILY
     Route: 048
     Dates: start: 20010107
  2. CLOZARIL [Suspect]
     Dosage: 550 MG, QD
     Route: 048

REACTIONS (12)
  - Squamous cell carcinoma of lung [Fatal]
  - Neoplasm malignant [Fatal]
  - Lung neoplasm malignant [Fatal]
  - Pneumonia [Unknown]
  - Sedation [Recovered/Resolved]
  - Somnolence [Unknown]
  - Antipsychotic drug level increased [Unknown]
  - Anaemia [Unknown]
  - Haemoglobin decreased [Unknown]
  - White blood cell count increased [Unknown]
  - Neutrophil count increased [Unknown]
  - Eosinophil count increased [Unknown]
